FAERS Safety Report 8320991-6 (Version None)
Quarter: 2012Q2

REPORT INFORMATION
  Report Type: 
  Country: None (occurrence: None)
  Receive Date: 20120430
  Receipt Date: 20120423
  Transmission Date: 20120825
  Serious: Yes (Hospitalization)
  Sender: FDA-Public Use
  Company Number: DE-MPIJNJ-2012-01892

PATIENT

DRUGS (4)
  1. VELCADE [Suspect]
     Indication: MULTIPLE MYELOMA
     Dosage: 2.6 MG, 2/WEEK
     Route: 042
     Dates: start: 20120109, end: 20120202
  2. COTRIM FORTE EU RHO [Concomitant]
  3. ACYCLOVIR [Concomitant]
     Dosage: 800 MG, UNK
     Route: 048
  4. PANTOZOL                           /01263202/ [Concomitant]
     Dosage: 40 MG, UNK
     Route: 048

REACTIONS (4)
  - SYNCOPE [None]
  - FACE OEDEMA [None]
  - DIZZINESS POSTURAL [None]
  - PERIORBITAL HAEMORRHAGE [None]
